FAERS Safety Report 17208086 (Version 1)
Quarter: 2019Q4

REPORT INFORMATION
  Report Type: Spontaneous
  Country: US (occurrence: US)
  Receive Date: 20191227
  Receipt Date: 20191227
  Transmission Date: 20200122
  Serious: Yes (Other)
  Sender: FDA-Public Use
  Company Number: US-UCBSA-2016012396

PATIENT
  Age: 23 Year
  Sex: Male

DRUGS (4)
  1. CERTOLIZUMAB PEGOL [Suspect]
     Active Substance: CERTOLIZUMAB PEGOL
     Indication: CROHN^S DISEASE
     Dosage: UNKNOWN DOSE
  2. VALACYCLOVIR HYDROCHLORIDE. [Concomitant]
     Active Substance: VALACYCLOVIR HYDROCHLORIDE
     Indication: HERPES SIMPLEX
     Dosage: UNKNOWN DOSE
  3. PREDNISONE. [Concomitant]
     Active Substance: PREDNISONE
     Indication: HERPES SIMPLEX
     Dosage: UNKNOWN DOSE
     Route: 048
  4. FLUTICASONE. [Concomitant]
     Active Substance: FLUTICASONE
     Indication: PRODUCT USED FOR UNKNOWN INDICATION
     Dosage: UNK

REACTIONS (9)
  - Odynophagia [Unknown]
  - JC virus infection [Unknown]
  - Aphthous ulcer [Unknown]
  - Pyoderma gangrenosum [Unknown]
  - Ileal stenosis [Recovering/Resolving]
  - Mouth ulceration [Unknown]
  - Weight decreased [Unknown]
  - Stoma site abscess [Recovering/Resolving]
  - Oesophageal ulcer [Unknown]
